FAERS Safety Report 15290149 (Version 1)
Quarter: 2018Q3

REPORT INFORMATION
  Report Type: Spontaneous
  Country: US (occurrence: US)
  Receive Date: 20180817
  Receipt Date: 20180817
  Transmission Date: 20181010
  Serious: Yes (Other)
  Sender: FDA-Public Use
  Company Number: US-JNJFOC-20180816830

PATIENT
  Sex: Female

DRUGS (8)
  1. VALTREX [Concomitant]
     Active Substance: VALACYCLOVIR HYDROCHLORIDE
  2. COQ10 [Concomitant]
     Active Substance: UBIDECARENONE
  3. CENTRUM [Concomitant]
     Active Substance: VITAMINS
  4. SILVER [Concomitant]
     Active Substance: SILVER
  5. CITRACAL [Concomitant]
     Active Substance: CALCIUM CITRATE
  6. IMBRUVICA [Suspect]
     Active Substance: IBRUTINIB
     Indication: CHRONIC LYMPHOCYTIC LEUKAEMIA
     Route: 048
     Dates: start: 20180419
  7. FISH OIL [Concomitant]
     Active Substance: FISH OIL
  8. PROLIA [Concomitant]
     Active Substance: DENOSUMAB

REACTIONS (1)
  - Parkinson^s disease [Unknown]
